FAERS Safety Report 4815371-1 (Version None)
Quarter: 2005Q4

REPORT INFORMATION
  Report Type: 
  Country: None (occurrence: None)
  Receive Date: 20051027
  Receipt Date: 20051013
  Transmission Date: 20060501
  Serious: Yes (Death)
  Sender: FDA-Public Use
  Company Number: 2005RL000143

PATIENT
  Age: 37 Year

DRUGS (4)
  1. INNOPRAN XL [Suspect]
     Dates: end: 20040101
  2. ACETAMINOPHEN [Suspect]
     Dates: end: 20040101
  3. PROPOXYPHENE HYDROCHLORIDE CAP [Suspect]
     Dates: end: 20040101
  4. QUETIAPINE FUMARATE [Suspect]
     Dates: end: 20040101

REACTIONS (1)
  - COMPLETED SUICIDE [None]
